FAERS Safety Report 16501327 (Version 2)
Quarter: 2019Q3

REPORT INFORMATION
  Report Type: Spontaneous
  Country: DE (occurrence: DE)
  Receive Date: 20190701
  Receipt Date: 20190719
  Transmission Date: 20191004
  Serious: Yes (Other)
  Sender: FDA-Public Use
  Company Number: DE-PFIZER INC-2019276689

PATIENT
  Age: 10 Year
  Sex: Male
  Weight: 24 kg

DRUGS (22)
  1. MUCOCLEAR [AMBROXOL HYDROCHLORIDE] [Concomitant]
     Indication: CYSTIC FIBROSIS
     Dosage: 4 DF, 2X/DAY (PERMANENT USE)
     Route: 055
     Dates: start: 20150315
  2. COTRIMOXAZOL [Concomitant]
     Active Substance: SULFAMETHOXAZOLE\TRIMETHOPRIM
     Indication: CYSTIC FIBROSIS
     Dosage: 480 MG, 2X/DAY
     Route: 048
     Dates: start: 20190131
  3. INFECTOFOS [Suspect]
     Active Substance: FOSFOMYCIN SODIUM
     Indication: CYSTIC FIBROSIS
     Dosage: 1500 MG, 3X/DAY
     Route: 042
     Dates: start: 20190131, end: 20190206
  4. CAYSTON [Concomitant]
     Active Substance: AZTREONAM
     Indication: CYSTIC FIBROSIS
     Dosage: 75 MG, 3X/DAY (4 WEEK EXCHANGING WITH TOBRAMYCIN SINCE JUN2018)
     Route: 048
     Dates: start: 20161026, end: 20190130
  5. CIPROFLOXACIN. [Concomitant]
     Active Substance: CIPROFLOXACIN
     Indication: PRODUCTIVE COUGH
  6. VITAMIN K [PHYTOMENADIONE] [Concomitant]
     Indication: PANCREATIC DISORDER
     Dosage: UNK (PERMANENT USE AS NEEDED)
     Route: 048
     Dates: start: 20131121
  7. SALBUTAMOL [Concomitant]
     Active Substance: ALBUTEROL
     Indication: CYSTIC FIBROSIS
     Dosage: 4 DF, 2X/DAY (PERMANENT USE)
     Route: 055
     Dates: start: 20140325
  8. TOBRAMYCIN. [Concomitant]
     Active Substance: TOBRAMYCIN
     Indication: CYSTIC FIBROSIS
     Dosage: 170 MG, 2X/DAY (UNK (170-0-170-0, PERMANENT USE 4 WEEKS IN EXCHANGE WITH AZTREONAM LYSINE)
     Route: 055
     Dates: start: 20180605
  9. CLEMASTINE [Concomitant]
     Active Substance: CLEMASTINE
     Indication: HYPERSENSITIVITY
     Route: 042
     Dates: start: 20190204, end: 20190206
  10. PARACETAMOL [Concomitant]
     Active Substance: ACETAMINOPHEN
     Indication: PAIN
     Dosage: 350 MG, UNK (USE IF NECESSARY)
     Route: 048
     Dates: start: 20190201, end: 20190228
  11. IBUPROFEN. [Concomitant]
     Active Substance: IBUPROFEN
     Dosage: 200 MG, 3X/DAY  (USE IF NECESSARY)
     Route: 048
     Dates: start: 20190202, end: 20190228
  12. KREON [Concomitant]
     Active Substance: PANCRELIPASE
     Indication: PANCREATIC DISORDER
     Dosage: UNK (PERMANENT USE AS NEEDED)
     Route: 048
     Dates: start: 20131121
  13. MEROPENEM. [Suspect]
     Active Substance: MEROPENEM
     Indication: CYSTIC FIBROSIS
     Dosage: 800 MG, 1X/DAY
     Route: 042
     Dates: start: 20190205, end: 20190205
  14. VITAMIN D [ERGOCALCIFEROL] [Concomitant]
     Active Substance: ERGOCALCIFEROL
     Indication: PANCREATIC DISORDER
     Dosage: UNK (PERMANENT USE AS NEEDED)
     Route: 048
     Dates: start: 20131121
  15. URSOFALK [Concomitant]
     Active Substance: URSODIOL
     Indication: LIVER DISORDER
     Dosage: 1 DF, 2X/DAY (PERMANENT USE)
     Route: 048
     Dates: start: 20131121
  16. CEFTAZIDIME. [Concomitant]
     Active Substance: CEFTAZIDIME
     Indication: CYSTIC FIBROSIS
     Dosage: 1500 MG, 3X/DAY
     Route: 042
     Dates: start: 20190131, end: 20190204
  17. VITAMIN A [RETINOL] [Concomitant]
     Active Substance: RETINOL
     Indication: PANCREATIC DISORDER
     Dosage: UNK (PERMANENT USE AS NEEDED)
     Route: 048
     Dates: start: 20131121
  18. ATROVENT [Concomitant]
     Active Substance: IPRATROPIUM BROMIDE
     Indication: CYSTIC FIBROSIS
     Dosage: 10 DF, 2X/DAY (PERMANENT USE)
     Route: 055
     Dates: start: 20140325
  19. VITAMIN E [Concomitant]
     Active Substance: .ALPHA.-TOCOPHEROL
     Indication: PANCREATIC DISORDER
     Dosage: UNK (PERMANENT USE AS NEEDED)
     Route: 048
     Dates: start: 20131121
  20. PARACETAMOL [Concomitant]
     Active Substance: ACETAMINOPHEN
     Indication: PYREXIA
  21. PULMOZYME [Concomitant]
     Active Substance: DORNASE ALFA
     Indication: CYSTIC FIBROSIS
     Dosage: 1 DF, 1X/DAY (PERMANENT USE)
     Route: 055
     Dates: start: 20150315
  22. CIPROFLOXACIN. [Concomitant]
     Active Substance: CIPROFLOXACIN
     Indication: PYREXIA
     Dosage: 350 MG, 2X/DAY
     Route: 048
     Dates: start: 20190128, end: 20190130

REACTIONS (7)
  - Hypotension [Recovered/Resolved]
  - Rash generalised [Recovered/Resolved]
  - Pyrexia [Recovered/Resolved]
  - Petechiae [Recovered/Resolved]
  - Visual impairment [Recovered/Resolved]
  - Headache [Recovered/Resolved]
  - Erythema [Recovered/Resolved]

NARRATIVE: CASE EVENT DATE: 20190204
